FAERS Safety Report 7413908-X (Version None)
Quarter: 2011Q2

REPORT INFORMATION
  Report Type: 
  Country: None (occurrence: None)
  Receive Date: 20110414
  Receipt Date: 20110407
  Transmission Date: 20111010
  Serious: Yes (Hospitalization)
  Sender: FDA-Public Use
  Company Number: US-BIOGENIDEC-2007BI008722

PATIENT
  Age: 58 Year
  Sex: Female
  Weight: 63 kg

DRUGS (5)
  1. LEVOTHYROXINE [Concomitant]
     Indication: THYROID DISORDER
  2. AVONEX [Suspect]
     Route: 030
     Dates: start: 20070413
  3. AVONEX [Suspect]
     Indication: MULTIPLE SCLEROSIS
     Route: 030
     Dates: start: 19961001, end: 20030101
  4. AVONEX [Suspect]
     Route: 030
     Dates: start: 20030101
  5. THYROID MEDICATION (NOS) [Concomitant]
     Indication: PRODUCT USED FOR UNKNOWN INDICATION

REACTIONS (9)
  - BLOOD CHOLESTEROL INCREASED [None]
  - GAIT DISTURBANCE [None]
  - WEIGHT DECREASED [None]
  - ASTHENIA [None]
  - COLON CANCER [None]
  - CORONARY ARTERY OCCLUSION [None]
  - VISUAL IMPAIRMENT [None]
  - CORONARY ARTERY DISEASE [None]
  - RESPIRATORY ARREST [None]
